FAERS Safety Report 23167184 (Version 2)
Quarter: 2024Q4

REPORT INFORMATION
  Report Type: Report from Study
  Country: US (occurrence: US)
  Receive Date: 20231109
  Receipt Date: 20241018
  Transmission Date: 20250115
  Serious: Yes (Other)
  Sender: NOVARTIS
  Company Number: US-002147023-NVSC2023US238813

PATIENT
  Sex: Male

DRUGS (1)
  1. ENTRESTO [Suspect]
     Active Substance: SACUBITRIL\VALSARTAN
     Indication: Cardiac failure congestive
     Dosage: 24/26 MG, BID
     Route: 048
     Dates: start: 20240617

REACTIONS (7)
  - Cardiac failure congestive [Unknown]
  - Atrial fibrillation [Unknown]
  - Pulmonary hypertension [Unknown]
  - Dysgraphia [Unknown]
  - Memory impairment [Unknown]
  - Cardiovascular disorder [Unknown]
  - Hypertensive heart disease [Unknown]
